FAERS Safety Report 5714204-9 (Version None)
Quarter: 2008Q2

REPORT INFORMATION
  Report Type: 
  Country: None (occurrence: None)
  Receive Date: 20080423
  Receipt Date: 20071004
  Transmission Date: 20081010
  Serious: No
  Sender: FDA-Public Use
  Company Number: US-KINGPHARMUSA00001-K200701289

PATIENT

DRUGS (6)
  1. SKELAXIN [Suspect]
     Indication: ARTHRITIS
     Dosage: 800 MG, BID
     Route: 048
     Dates: start: 20071002, end: 20071003
  2. SKELAXIN [Suspect]
     Indication: FIBROMYALGIA
  3. CLONIDINE HCL [Concomitant]
  4. VERAPAMIL [Concomitant]
  5. UNSPECIFIED PAIN MEDICATION [Concomitant]
     Indication: PAIN
  6. UNSPECIFIED HEART MEDICATION [Concomitant]
     Indication: CARDIAC DISORDER

REACTIONS (2)
  - DIZZINESS [None]
  - OEDEMA PERIPHERAL [None]
